FAERS Safety Report 5244396-X (Version None)
Quarter: 2007Q1

REPORT INFORMATION
  Report Type: 
  Country: None (occurrence: None)
  Receive Date: 20070222
  Receipt Date: 20070214
  Transmission Date: 20070707
  Serious: Yes (Hospitalization)
  Sender: FDA-Public Use
  Company Number: 2007CG00279

PATIENT
  Age: 49 Year
  Sex: Female
  Weight: 56 kg

DRUGS (2)
  1. NOLVADEX [Suspect]
     Indication: BREAST CANCER FEMALE
     Route: 048
     Dates: start: 20030101, end: 20061127
  2. NOLVADEX [Suspect]
     Indication: BREAST CANCER IN SITU
     Route: 048
     Dates: start: 20030101, end: 20061127

REACTIONS (4)
  - DYSARTHRIA [None]
  - HEADACHE [None]
  - ISCHAEMIC STROKE [None]
  - PARESIS [None]
